FAERS Safety Report 7222766 (Version 4)
Quarter: 2018Q4

REPORT INFORMATION
  Report Type: Spontaneous
  Country: JP (occurrence: JP)
  Receive Date: 20091218
  Receipt Date: 20181121
  Transmission Date: 20190205
  Serious: Yes (Death, Hospitalization, Disabling, Other)
  Sender: FDA-Public Use
  Company Number: PHHY2009JP54977

PATIENT
  Age: 78 Year
  Sex: Female
  Weight: 45 kg

DRUGS (23)
  1. MAGNESIUM OXIDE. [Concomitant]
     Active Substance: MAGNESIUM OXIDE
     Indication: CONSTIPATION
     Dosage: 2 G, UNK
     Route: 048
  2. DECADRON [Concomitant]
     Active Substance: DEXAMETHASONE
     Indication: CHEMOTHERAPY
     Dosage: 8 MG, QD
     Route: 041
     Dates: start: 20071031, end: 20090304
  3. ZOMETA [Suspect]
     Active Substance: ZOLEDRONIC ACID
     Indication: METASTASES TO BONE
     Dosage: 4 MG, QD
     Route: 042
     Dates: start: 200706, end: 200910
  4. PURSENNID [Concomitant]
     Active Substance: SENNOSIDES A AND B
     Indication: CONSTIPATION
     Dosage: 12 MG, QD
     Route: 048
  5. GASTER [Concomitant]
     Active Substance: FAMOTIDINE
     Indication: CHEMOTHERAPY
     Dosage: 20 MG, QD
     Route: 041
     Dates: start: 20071031, end: 20090304
  6. RAMOSETRON HYDROCHLORIDE [Concomitant]
     Active Substance: RAMOSETRON HYDROCHLORIDE
     Indication: CHEMOTHERAPY
     Dosage: 0.1 MG, UNK
     Route: 048
     Dates: start: 20071031, end: 20090304
  7. AREDIA [Concomitant]
     Active Substance: PAMIDRONATE DISODIUM
     Indication: PRODUCT USED FOR UNKNOWN INDICATION
     Dosage: UNK
     Route: 065
     Dates: start: 20031224
  8. ZOMETA [Suspect]
     Active Substance: ZOLEDRONIC ACID
     Indication: BREAST CANCER RECURRENT
  9. NAVELBINE [Concomitant]
     Active Substance: VINORELBINE TARTRATE
     Indication: BREAST CANCER
     Dosage: 20 MG, QD
     Route: 042
     Dates: start: 20090304, end: 20090722
  10. FARESTON [Concomitant]
     Active Substance: TOREMIFENE CITRATE
     Indication: PRODUCT USED FOR UNKNOWN INDICATION
     Dosage: UNK
     Route: 048
  11. ARIMIDEX [Concomitant]
     Active Substance: ANASTROZOLE
     Indication: PRODUCT USED FOR UNKNOWN INDICATION
     Dosage: UNK
     Route: 065
     Dates: start: 20031223
  12. ZOMETA [Suspect]
     Active Substance: ZOLEDRONIC ACID
     Indication: BONE LESION
  13. TAXOL [Concomitant]
     Active Substance: PACLITAXEL
     Indication: CHEMOTHERAPY
     Dosage: 100 MG, UNK
     Route: 041
     Dates: start: 20071031, end: 20090304
  14. RESTAMIN [Concomitant]
     Active Substance: DIPHENHYDRAMINE
     Indication: CHEMOTHERAPY
     Dosage: 50 MG, QD
     Route: 048
     Dates: start: 20071031, end: 20090304
  15. BISPHONAL [Suspect]
     Active Substance: INCADRONATE DISODIUM
     Indication: BREAST CANCER
     Dosage: UNK
     Route: 042
     Dates: start: 200603, end: 200806
  16. TAMOXIFEN CITRATE. [Concomitant]
     Active Substance: TAMOXIFEN CITRATE
     Indication: PRODUCT USED FOR UNKNOWN INDICATION
     Dosage: UNK
     Route: 065
  17. OXYCONTIN [Concomitant]
     Active Substance: OXYCODONE HYDROCHLORIDE
     Indication: PRODUCT USED FOR UNKNOWN INDICATION
     Dosage: UNK
     Route: 065
  18. FEMARA [Suspect]
     Active Substance: LETROZOLE
     Indication: BREAST CANCER
     Dosage: 2.5 MG, QD
     Route: 048
     Dates: start: 20090722, end: 20091029
  19. NORVASC [Concomitant]
     Active Substance: AMLODIPINE BESYLATE
     Indication: HYPERTENSION
     Dosage: 215 MG, QD
     Route: 048
  20. NASEA [Concomitant]
     Active Substance: RAMOSETRON HYDROCHLORIDE
     Indication: CHEMOTHERAPY
     Dosage: 0.1 MG, UNK
     Route: 048
     Dates: start: 20071031, end: 20090304
  21. NOLVADEX [Concomitant]
     Active Substance: TAMOXIFEN CITRATE
     Indication: BREAST CANCER
     Dosage: 1 MG, QD
     Route: 048
     Dates: start: 200603, end: 200710
  22. BAYASPIRIN [Concomitant]
     Active Substance: ASPIRIN
     Indication: HYPERTENSION
     Dosage: 100 MG, UNK
     Route: 048
  23. DUROTEP [Concomitant]
     Active Substance: FENTANYL
     Indication: PAIN
     Dosage: 18 MG, QD
     Route: 062
     Dates: start: 200606, end: 20091120

REACTIONS (11)
  - Breast cancer recurrent [Fatal]
  - Malignant neoplasm progression [Fatal]
  - Osteomyelitis [Recovering/Resolving]
  - Abscess oral [Not Recovered/Not Resolved]
  - Swelling [Unknown]
  - Sequestrectomy [Unknown]
  - Tooth extraction [Unknown]
  - Impaired healing [Unknown]
  - Aspartate aminotransferase increased [Unknown]
  - Blood potassium increased [Unknown]
  - C-reactive protein increased [Unknown]

NARRATIVE: CASE EVENT DATE: 200707
